FAERS Safety Report 21378493 (Version 1)
Quarter: 2022Q3

REPORT INFORMATION
  Report Type: Spontaneous
  Country: TR (occurrence: TR)
  Receive Date: 20220927
  Receipt Date: 20220927
  Transmission Date: 20221026
  Serious: Yes (Other)
  Sender: FDA-Public Use
  Company Number: TR-AMGEN-TURSP2022162672

PATIENT

DRUGS (1)
  1. PROLIA [Suspect]
     Active Substance: DENOSUMAB
     Indication: Osteoporosis
     Route: 058

REACTIONS (7)
  - Spinal fracture [Unknown]
  - Femur fracture [Unknown]
  - Humerus fracture [Unknown]
  - Wrist fracture [Unknown]
  - Adverse event [Unknown]
  - Urticaria [Unknown]
  - Treatment noncompliance [Unknown]
